FAERS Safety Report 17163020 (Version 1)
Quarter: 2019Q4

REPORT INFORMATION
  Report Type: Spontaneous
  Country: US (occurrence: US)
  Receive Date: 20191123
  Receipt Date: 20191123
  Transmission Date: 20200122
  Serious: No
  Sender: FDA-Public Use
  Company Number: None

PATIENT
  Sex: Male
  Weight: 13.5 kg

DRUGS (1)
  1. CISPLATIN (119875) [Suspect]
     Active Substance: CISPLATIN

REACTIONS (5)
  - Infusion related reaction [None]
  - Vomiting [None]
  - Flushing [None]
  - Cough [None]
  - Headache [None]

NARRATIVE: CASE EVENT DATE: 20191110
